FAERS Safety Report 20909377 (Version 1)
Quarter: 2022Q2

REPORT INFORMATION
  Report Type: Spontaneous
  Country: US (occurrence: US)
  Receive Date: 20220603
  Receipt Date: 20220603
  Transmission Date: 20220720
  Serious: Yes (Hospitalization)
  Sender: FDA-Public Use
  Company Number: US-CYCLE PHARMACEUTICALS LTD-2022-CYC-000015

PATIENT
  Sex: Female
  Weight: 54.195 kg

DRUGS (1)
  1. NITISINONE [Suspect]
     Active Substance: NITISINONE
     Indication: Amino acid metabolism disorder
     Dosage: 2 MG, BID, 10 MG, BID
     Route: 048

REACTIONS (2)
  - Abdominal pain [Unknown]
  - Underdose [Unknown]
